FAERS Safety Report 6470553-0 (Version None)
Quarter: 2009Q4

REPORT INFORMATION
  Report Type: 
  Country: None (occurrence: None)
  Receive Date: 20091203
  Receipt Date: 20091123
  Transmission Date: 20100525
  Serious: Yes (Other)
  Sender: FDA-Public Use
  Company Number: BR-PFIZER INC-2009301468

PATIENT
  Sex: Male
  Weight: 30 kg

DRUGS (1)
  1. EPELIN [Suspect]
     Indication: CONVULSION
     Dosage: 7 MG, DAILY
     Route: 048
     Dates: start: 19870201

REACTIONS (4)
  - CONVULSION [None]
  - OEDEMA MOUTH [None]
  - RESPIRATORY ARREST [None]
  - TOOTH MALFORMATION [None]
